FAERS Safety Report 5576279-X (Version None)
Quarter: 2007Q4

REPORT INFORMATION
  Report Type: 
  Country: None (occurrence: None)
  Receive Date: 20071228
  Receipt Date: 20071219
  Transmission Date: 20080405
  Serious: Yes (Hospitalization)
  Sender: FDA-Public Use
  Company Number: IT-BAYER-200717111GPV

PATIENT
  Age: 47 Year
  Sex: Male

DRUGS (1)
  1. CARDIOASPIRIN 100 [Suspect]
     Indication: CARDIOVASCULAR EVENT PROPHYLAXIS
     Dosage: TOTAL DAILY DOSE: 100 MG  UNIT DOSE: 100 MG
     Route: 048
     Dates: start: 20040101, end: 20070906

REACTIONS (3)
  - DUODENAL ULCER HAEMORRHAGE [None]
  - HAEMORRHAGIC ANAEMIA [None]
  - MELAENA [None]
